FAERS Safety Report 5756819-8 (Version None)
Quarter: 2008Q2

REPORT INFORMATION
  Report Type: 
  Country: None (occurrence: None)
  Receive Date: 20080529
  Receipt Date: 20080515
  Transmission Date: 20081010
  Serious: Yes (Other)
  Sender: FDA-Public Use
  Company Number: 234547J08USA

PATIENT
  Age: 15 Year
  Sex: Female

DRUGS (3)
  1. REBIF [Suspect]
     Indication: OFF LABEL USE
     Dosage: 8.8 MCG, 3 IN 1 WEEKS, SUBCUTANEOUS
     Route: 058
     Dates: start: 20080506
  2. BENADRYL [Concomitant]
  3. CLARITIN [Concomitant]

REACTIONS (7)
  - DEPRESSED MOOD [None]
  - DYSARTHRIA [None]
  - EMOTIONAL DISORDER [None]
  - EXCESSIVE EYE BLINKING [None]
  - FATIGUE [None]
  - INFLUENZA LIKE ILLNESS [None]
  - PETIT MAL EPILEPSY [None]
